FAERS Safety Report 24140739 (Version 3)
Quarter: 2025Q2

REPORT INFORMATION
  Report Type: Spontaneous
  Country: DE (occurrence: DE)
  Receive Date: 20240726
  Receipt Date: 20250428
  Transmission Date: 20250716
  Serious: Yes (Death, Other)
  Sender: LABORATOIRES SERB
  Company Number: DE-SERB S.A.S.-2159641

PATIENT
  Age: 45 Year
  Sex: Male

DRUGS (3)
  1. CYANOKIT [Suspect]
     Active Substance: HYDROXOCOBALAMIN
     Indication: Injury
     Dates: start: 20240324, end: 20240324
  2. CYANOKIT [Suspect]
     Active Substance: HYDROXOCOBALAMIN
     Indication: Chemical poisoning
  3. CYANOKIT [Suspect]
     Active Substance: HYDROXOCOBALAMIN
     Indication: Respiratory fume inhalation disorder

REACTIONS (4)
  - Arrhythmia [Fatal]
  - Inappropriate schedule of product administration [Unknown]
  - Cardiac arrest [Fatal]
  - Cardiac arrest [Fatal]

NARRATIVE: CASE EVENT DATE: 20240325
